FAERS Safety Report 8555405-4 (Version None)
Quarter: 2012Q3

REPORT INFORMATION
  Report Type: 
  Country: None (occurrence: None)
  Receive Date: 20120731
  Receipt Date: 20110725
  Transmission Date: 20120928
  Serious: Yes (Hospitalization)
  Sender: FDA-Public Use
  Company Number: US-ASTRAZENECA-2011SE44426

PATIENT
  Age: 10 Year

DRUGS (8)
  1. RISPERIDONE [Suspect]
     Route: 048
  2. FOCALIN [Suspect]
     Route: 048
  3. IMIPRAMINE HCL [Suspect]
     Route: 048
  4. LITHIUM CARBONATE [Suspect]
     Route: 048
  5. VALPROATE SODIUM [Suspect]
     Route: 048
  6. CONCERTA [Suspect]
     Route: 048
  7. METHYLPHENIDATE [Suspect]
     Route: 048
  8. QUETIAPINE [Suspect]
     Route: 048

REACTIONS (3)
  - MUSCLE RIGIDITY [None]
  - TREMOR [None]
  - AGITATION [None]
